FAERS Safety Report 4713673-0 (Version None)
Quarter: 2005Q3

REPORT INFORMATION
  Report Type: 
  Country: None (occurrence: None)
  Receive Date: 20050712
  Receipt Date: 20050701
  Transmission Date: 20060218
  Serious: Yes (Hospitalization)
  Sender: FDA-Public Use
  Company Number: TCI2004A03291

PATIENT
  Age: 64 Year
  Sex: Male

DRUGS (13)
  1. PIOGLITAZONE HCL [Suspect]
     Indication: DIABETES MELLITUS NON-INSULIN-DEPENDENT
     Dosage: SEE IMAGE
     Dates: start: 20040325, end: 20040518
  2. PIOGLITAZONE HCL [Suspect]
     Indication: DIABETES MELLITUS NON-INSULIN-DEPENDENT
     Dosage: SEE IMAGE
     Dates: start: 20040519, end: 20040908
  3. VOGLIBOSE (VOGLIBOSE) [Suspect]
     Indication: DIABETES MELLITUS NON-INSULIN-DEPENDENT
     Dosage: SEE IMAGE
     Dates: start: 20040324, end: 20040324
  4. VOGLIBOSE (VOGLIBOSE) [Suspect]
     Indication: DIABETES MELLITUS NON-INSULIN-DEPENDENT
     Dosage: SEE IMAGE
     Dates: start: 20040325, end: 20040908
  5. . [Concomitant]
  6. BASEN TABLETS 0.2 (VOGLIBOSE) [Suspect]
     Indication: DIABETES MELLITUS NON-INSULIN-DEPENDENT
     Dosage: 0.6 MG (0.2 MG,3 IN 1 D),PER ORAL;0.2 MG (0.2 MG,1 IN 1 D),PER ORAL; 0.6 MG (0.6 MG,1 D),PER ORAL
     Route: 048
     Dates: start: 20040324, end: 20040324
  7. BASEN TABLETS 0.2 (VOGLIBOSE) [Suspect]
     Indication: DIABETES MELLITUS NON-INSULIN-DEPENDENT
     Dosage: 0.6 MG (0.2 MG,3 IN 1 D),PER ORAL;0.2 MG (0.2 MG,1 IN 1 D),PER ORAL; 0.6 MG (0.6 MG,1 D),PER ORAL
     Route: 048
     Dates: start: 20020309, end: 20040324
  8. BASEN TABLETS 0.2 (VOGLIBOSE) [Suspect]
     Indication: DIABETES MELLITUS NON-INSULIN-DEPENDENT
     Dosage: 0.6 MG (0.2 MG,3 IN 1 D),PER ORAL;0.2 MG (0.2 MG,1 IN 1 D),PER ORAL; 0.6 MG (0.6 MG,1 D),PER ORAL
     Route: 048
     Dates: start: 20040909
  9. ALLOPURINOL [Concomitant]
  10. VIAGRA [Concomitant]
  11. EUGLUCON (GLIBENCLAMIDE) [Concomitant]
  12. AMARYL [Concomitant]
  13. URINORM (BENZBROMARONE) [Concomitant]

REACTIONS (4)
  - BILE DUCT CANCER [None]
  - DECREASED APPETITE [None]
  - JAUNDICE CHOLESTATIC [None]
  - POST PROCEDURAL COMPLICATION [None]
